FAERS Safety Report 6414244-0 (Version None)
Quarter: 2009Q4

REPORT INFORMATION
  Report Type: 
  Country: None (occurrence: None)
  Receive Date: 20091026
  Receipt Date: 20091019
  Transmission Date: 20100525
  Serious: Yes (Hospitalization)
  Sender: FDA-Public Use
  Company Number: MX-BRISTOL-MYERS SQUIBB COMPANY-14828339

PATIENT
  Age: 34 Year
  Sex: Male

DRUGS (3)
  1. ARIPIPRAZOLE [Suspect]
     Indication: SCHIZOPHRENIA
     Route: 048
  2. BIPERIDEN HYDROCHLORIDE TAB [Concomitant]
     Dates: start: 20090710
  3. LORAZEPAM [Concomitant]
     Dates: start: 20090710

REACTIONS (1)
  - SCHIZOPHRENIA [None]
